FAERS Safety Report 4726842-0 (Version None)
Quarter: 2005Q3

REPORT INFORMATION
  Report Type: 
  Country: None (occurrence: None)
  Receive Date: 20050726
  Receipt Date: 20050714
  Transmission Date: 20060218
  Serious: No
  Sender: FDA-Public Use
  Company Number: RS005344-J

PATIENT
  Sex: Male

DRUGS (1)
  1. RABEPRAZOLE SODIUM [Suspect]
     Indication: STOMACH DISCOMFORT
     Dosage: 20 MG, 1 IN 1 D, ORAL
     Route: 048

REACTIONS (3)
  - GASTRIC NEOPLASM [None]
  - ORAL MUCOSAL DISCOLOURATION [None]
  - SCROTAL OEDEMA [None]
